FAERS Safety Report 5303645-X (Version None)
Quarter: 2007Q2

REPORT INFORMATION
  Report Type: 
  Country: None (occurrence: None)
  Receive Date: 20070420
  Receipt Date: 20070413
  Transmission Date: 20071010
  Serious: Yes (Life-Threatening, Hospitalization)
  Sender: FDA-Public Use
  Company Number: US-SHR-US-2007-010335

PATIENT
  Age: 60 Year
  Sex: Female
  Weight: 80 kg

DRUGS (3)
  1. MAGNEVIST [Suspect]
     Indication: NUCLEAR MAGNETIC RESONANCE IMAGING BRAIN
     Dosage: 15 ML, 1 DOSE
     Route: 042
     Dates: start: 20070313, end: 20070313
  2. NITROGLYCERIN [Concomitant]
     Indication: ANGINA PECTORIS
  3. OTHER ANTIHYPERTENSIVES [Concomitant]
     Indication: HYPERTENSION
     Dates: start: 20070101

REACTIONS (14)
  - ANAPHYLACTIC SHOCK [None]
  - ANXIETY [None]
  - ARTHRALGIA [None]
  - BLOOD CREATININE INCREASED [None]
  - BLOOD UREA INCREASED [None]
  - CHEST PAIN [None]
  - CIRCULATORY COLLAPSE [None]
  - DYSPNOEA [None]
  - HYPOTENSION [None]
  - PALLOR [None]
  - PLATELET COUNT DECREASED [None]
  - TACHYCARDIA [None]
  - URINARY TRACT INFECTION BACTERIAL [None]
  - VENTRICULAR HYPERTROPHY [None]
